FAERS Safety Report 8606934-6 (Version None)
Quarter: 2012Q3

REPORT INFORMATION
  Report Type: 
  Country: None (occurrence: None)
  Receive Date: 20120820
  Receipt Date: 20120816
  Transmission Date: 20120928
  Serious: Yes (Hospitalization)
  Sender: FDA-Public Use
  Company Number: CL-ROCHE-1103294

PATIENT
  Sex: Male
  Weight: 66 kg

DRUGS (5)
  1. NITRENDIPINE [Concomitant]
     Route: 065
  2. ASPIRIN [Concomitant]
     Route: 065
  3. LOVASTATIN [Concomitant]
     Route: 065
  4. MABTHERA [Suspect]
     Indication: NON-HODGKIN'S LYMPHOMA
     Route: 042
     Dates: start: 20120608
  5. HYDROCHLOROTHIAZIDE [Concomitant]
     Route: 065

REACTIONS (1)
  - THROMBOSIS [None]
